FAERS Safety Report 17781153 (Version 1)
Quarter: 2020Q2

REPORT INFORMATION
  Report Type: Spontaneous
  Country: US (occurrence: US)
  Receive Date: 20200514
  Receipt Date: 20200514
  Transmission Date: 20200714
  Serious: Yes (Death, Other)
  Sender: FDA-Public Use
  Company Number: US-GLAXOSMITHKLINE-US2020GSK075607

PATIENT
  Sex: Female

DRUGS (1)
  1. ZEJULA [Suspect]
     Active Substance: NIRAPARIB
     Indication: OVARIAN CANCER
     Dosage: UNK
     Route: 065

REACTIONS (7)
  - Renal failure [Fatal]
  - Ovarian cancer recurrent [Unknown]
  - Chronic kidney disease [Unknown]
  - Disease progression [Unknown]
  - Renal disorder [Unknown]
  - Hypertension [Unknown]
  - Metastases to liver [Unknown]
